FAERS Safety Report 14356079 (Version 1)
Quarter: 2018Q1

REPORT INFORMATION
  Report Type: Other
  Country: GB (occurrence: GB)
  Receive Date: 20180105
  Receipt Date: 20180105
  Transmission Date: 20180509
  Serious: Yes (Hospitalization)
  Sender: FDA-Public Use
  Company Number: GB-CELLTRION INC.-2017GB017452

PATIENT

DRUGS (13)
  1. SERETIDE [Concomitant]
     Active Substance: FLUTICASONE PROPIONATE\SALMETEROL XINAFOATE
  2. MEBEVERINE [Concomitant]
     Active Substance: MEBEVERINE
  3. ONDANSETRON [Concomitant]
     Active Substance: ONDANSETRON
  4. PRUCALOPRIDE [Concomitant]
     Active Substance: PRUCALOPRIDE
  5. METHOTREXATE. [Concomitant]
     Active Substance: METHOTREXATE
  6. FOLIC ACID. [Concomitant]
     Active Substance: FOLIC ACID
  7. OMEPRAZOLE. [Concomitant]
     Active Substance: OMEPRAZOLE
  8. REMSIMA [Suspect]
     Active Substance: INFLIXIMAB
     Indication: JUVENILE IDIOPATHIC ARTHRITIS
     Dosage: 6 MG/KG
     Route: 042
     Dates: start: 20170801, end: 20170801
  9. CINNARIZINE [Concomitant]
     Active Substance: CINNARIZINE
  10. BRINZOLAMIDE [Concomitant]
     Active Substance: BRINZOLAMIDE
  11. GANFORT [Concomitant]
     Active Substance: BIMATOPROST\TIMOLOL
  12. SALBUTAMOL [Concomitant]
     Active Substance: ALBUTEROL
  13. MAXIDEX [Concomitant]
     Active Substance: DEXAMETHASONE

REACTIONS (4)
  - Uveitis [Unknown]
  - Dyspnoea [Not Recovered/Not Resolved]
  - Off label use [Unknown]
  - Product substitution issue [Unknown]

NARRATIVE: CASE EVENT DATE: 20170801
